FAERS Safety Report 5367744-9 (Version None)
Quarter: 2007Q2

REPORT INFORMATION
  Report Type: 
  Country: None (occurrence: None)
  Receive Date: 20070622
  Receipt Date: 20070328
  Transmission Date: 20071010
  Serious: No
  Sender: FDA-Public Use
  Company Number: US-ASTRAZENECA-2007UW06264

PATIENT
  Age: 81 Year
  Sex: Female
  Weight: 77.1 kg

DRUGS (8)
  1. PULMICORT RESPULES [Suspect]
     Indication: COUGH
     Route: 055
  2. TOPROL-XL [Concomitant]
  3. BENICAR [Concomitant]
  4. ASPIRIN [Concomitant]
  5. METFORMIN HCL [Concomitant]
  6. ZOCOR [Concomitant]
  7. LUMIGAN [Concomitant]
  8. MULTIVITAMIN [Concomitant]

REACTIONS (2)
  - NERVOUSNESS [None]
  - TREMOR [None]
